FAERS Safety Report 8313383-7 (Version None)
Quarter: 2012Q2

REPORT INFORMATION
  Report Type: 
  Country: None (occurrence: None)
  Receive Date: 20120426
  Receipt Date: 20120423
  Transmission Date: 20120825
  Serious: Yes (Death, Other)
  Sender: FDA-Public Use
  Company Number: PHEH2008US00490

PATIENT
  Sex: Male

DRUGS (11)
  1. LEVAQUIN [Concomitant]
  2. PERIDEX [Concomitant]
  3. DIGOXIN [Concomitant]
     Dosage: 0.125 MG, QD
     Route: 048
  4. LANOXIN [Concomitant]
  5. METHADONE HCL [Concomitant]
     Dosage: UNK UKN, BID
  6. MORPHINE SULFATE [Concomitant]
     Dosage: 5 MG, Q4H
     Route: 048
  7. ZOMETA [Suspect]
     Dosage: 4 MG, QMO
     Route: 042
  8. CLINDAMYCIN [Concomitant]
     Dosage: 150 MG, QID
  9. RISPERDAL [Concomitant]
     Dosage: 1 MG, QHS
     Route: 048
  10. PERIOSTAT [Concomitant]
     Dosage: 1 DF, BID
     Route: 048
  11. DILANTIN [Concomitant]
     Dosage: 100 MG, BID
     Route: 048

REACTIONS (55)
  - INJURY [None]
  - METASTASES TO SPINE [None]
  - AORTIC ARTERIOSCLEROSIS [None]
  - HIATUS HERNIA [None]
  - HEPATIC CYST [None]
  - OSTEOMYELITIS [None]
  - DIARRHOEA [None]
  - DEATH [None]
  - SWELLING [None]
  - ANHEDONIA [None]
  - INTERVERTEBRAL DISC DEGENERATION [None]
  - HYPERLIPIDAEMIA [None]
  - ANXIETY [None]
  - URINARY TRACT INFECTION [None]
  - METASTASES TO BONE [None]
  - MYOCARDIAL ISCHAEMIA [None]
  - SPINAL COMPRESSION FRACTURE [None]
  - INTERVERTEBRAL DISC SPACE NARROWING [None]
  - OSTEOARTHRITIS [None]
  - AMNESIA [None]
  - OSTEONECROSIS OF JAW [None]
  - PAIN [None]
  - GINGIVAL BLEEDING [None]
  - PROSTATE CANCER METASTATIC [None]
  - ACUTE PRERENAL FAILURE [None]
  - LUMBAR SPINAL STENOSIS [None]
  - SPINAL OSTEOARTHRITIS [None]
  - SUBDURAL HAEMATOMA [None]
  - VERTIGO [None]
  - BACK PAIN [None]
  - NEOPLASM MALIGNANT [None]
  - METASTASES TO PELVIS [None]
  - HYPOTENSION [None]
  - DEAFNESS BILATERAL [None]
  - VERTEBRAL FORAMINAL STENOSIS [None]
  - BLADDER OUTLET OBSTRUCTION [None]
  - CORONARY ARTERY DISEASE [None]
  - DIABETES MELLITUS [None]
  - NEPHROLITHIASIS [None]
  - LUMBAR RADICULOPATHY [None]
  - AORTIC ANEURYSM [None]
  - GOUT [None]
  - MITRAL VALVE PROLAPSE [None]
  - DIZZINESS [None]
  - PAIN IN JAW [None]
  - EXPOSED BONE IN JAW [None]
  - UPPER RESPIRATORY TRACT INFECTION [None]
  - PROSTATOMEGALY [None]
  - CONFUSIONAL STATE [None]
  - CALCULUS URETERIC [None]
  - NEUROPATHY PERIPHERAL [None]
  - DEPRESSION [None]
  - DEMENTIA [None]
  - POLLAKIURIA [None]
  - DECREASED APPETITE [None]
